FAERS Safety Report 5265262-X (Version None)
Quarter: 2007Q1

REPORT INFORMATION
  Report Type: 
  Country: None (occurrence: None)
  Receive Date: 20061121
  Receipt Date: 20061019
  Transmission Date: 20070707
  Serious: No
  Sender: FDA-Public Use
  Company Number: TPA2006A01825

PATIENT
  Age: 86 Year
  Sex: Male
  Weight: 84.369 kg

DRUGS (3)
  1. ROZEREM [Suspect]
     Indication: DEMENTIA ALZHEIMER'S TYPE
     Dosage: 8 MG, QHS, PER ORAL
     Route: 048
     Dates: start: 20061016
  2. RAZADYNE (ALL OTHER THERAPEUTIC PRODUCTS) [Concomitant]
  3. LIPITOR [Concomitant]

REACTIONS (2)
  - ABASIA [None]
  - MIDDLE INSOMNIA [None]
